FAERS Safety Report 23924321 (Version 2)
Quarter: 2024Q2

REPORT INFORMATION
  Report Type: Spontaneous
  Country: AR (occurrence: AR)
  Receive Date: 20240531
  Receipt Date: 20240610
  Transmission Date: 20240716
  Serious: Yes (Disabling, Other)
  Sender: FDA-Public Use
  Company Number: AR-ABBVIE-5779975

PATIENT
  Age: 32 Year
  Sex: Female

DRUGS (9)
  1. BRIMONIDINE [Suspect]
     Active Substance: BRIMONIDINE TARTRATE
     Indication: Ocular hypertension
     Route: 061
  2. GATIFLOXACIN [Suspect]
     Active Substance: GATIFLOXACIN
     Indication: Product used for unknown indication
     Route: 065
  3. DIFLUPREDNATE [Concomitant]
     Active Substance: DIFLUPREDNATE
     Indication: Preoperative care
     Route: 065
  4. MEPREDNISONE [Concomitant]
     Active Substance: MEPREDNISONE
     Indication: Preoperative care
     Dosage: 60 MILLIGRAM
     Route: 048
  5. MEPREDNISONE [Concomitant]
     Active Substance: MEPREDNISONE
     Indication: Preoperative care
     Dosage: DECREASING DOSES
     Route: 048
  6. MYCOPHENOLIC ACID [Concomitant]
     Active Substance: MYCOPHENOLIC ACID
     Indication: Product used for unknown indication
     Dosage: 1.5 GRAM
     Route: 065
  7. DORZOLAMIDE\TIMOLOL [Concomitant]
     Active Substance: DORZOLAMIDE\TIMOLOL
     Indication: Ocular hypertension
     Route: 061
  8. ACETAZOLAMIDE [Concomitant]
     Active Substance: ACETAZOLAMIDE
     Indication: Preoperative care
     Route: 048
  9. BROMFENAC [Concomitant]
     Active Substance: BROMFENAC SODIUM
     Indication: Preoperative care
     Route: 065

REACTIONS (5)
  - Visual acuity reduced [Unknown]
  - Vogt-Koyanagi-Harada disease [Unknown]
  - Unevaluable event [Unknown]
  - Corneal oedema [Unknown]
  - Fundoscopy abnormal [Unknown]
